FAERS Safety Report 12783156 (Version 1)
Quarter: 2016Q3

REPORT INFORMATION
  Report Type: Report from Study
  Country: US (occurrence: US)
  Receive Date: 20160927
  Receipt Date: 20160927
  Transmission Date: 20161109
  Serious: Yes (Other)
  Sender: FDA-Public Use
  Company Number: US-BEH-2009021006

PATIENT
  Age: 25 Year
  Sex: Male

DRUGS (1)
  1. IVIG LYOPHILIZED [Suspect]
     Active Substance: HUMAN IMMUNOGLOBULIN G
     Indication: IMMUNODEFICIENCY COMMON VARIABLE
     Dosage: 70 G EVERY 3 WEEKS
     Route: 042

REACTIONS (1)
  - Anaphylactic reaction [Unknown]
